FAERS Safety Report 4332484-1 (Version None)
Quarter: 2004Q2

REPORT INFORMATION
  Report Type: 
  Country: None (occurrence: None)
  Receive Date: 20040401
  Receipt Date: 20040326
  Transmission Date: 20050107
  Serious: Yes (Death)
  Sender: FDA-Public Use
  Company Number: BE-JNJFOC-20040300285

PATIENT
  Age: 73 Year
  Sex: Male

DRUGS (4)
  1. CISAPRIDE (CISAPRIDE) [Suspect]
     Indication: IMPAIRED GASTRIC EMPTYING
     Dosage: 10 MG, 3 IN 1 DAY
     Route: 048
     Dates: start: 20030226, end: 20030317
  2. DUOVENT (DUOVENT) INHALATION [Concomitant]
     Route: 055
  3. AMLODIPINE BESYLATE [Concomitant]
  4. FLIXOTIDE (FLUTICASONE) INHALATION [Concomitant]

REACTIONS (1)
  - LARGE INTESTINE PERFORATION [None]
